FAERS Safety Report 15458032 (Version 2)
Quarter: 2019Q1

REPORT INFORMATION
  Report Type: Spontaneous
  Country: HU (occurrence: HU)
  Receive Date: 20181003
  Receipt Date: 20190124
  Transmission Date: 20190417
  Serious: Yes (Other)
  Sender: FDA-Public Use
  Company Number: HU-AMGEN-HUNSP2018117003

PATIENT
  Age: 77 Year
  Sex: Female

DRUGS (3)
  1. VITAMIN D [Concomitant]
     Active Substance: CHOLECALCIFEROL
     Dosage: 3000 UNK, QD
  2. PROLIA [Suspect]
     Active Substance: DENOSUMAB
     Indication: PRODUCT USED FOR UNKNOWN INDICATION
     Dosage: UNK
     Route: 058
     Dates: start: 20180406
  3. CITROKALCIUM [Concomitant]
     Dosage: 200 MG, BID

REACTIONS (7)
  - Blood pressure fluctuation [Unknown]
  - Hyperhidrosis [Unknown]
  - Glaucoma [Not Recovered/Not Resolved]
  - Asthenia [Unknown]
  - Depressed mood [Unknown]
  - Dehydration [Unknown]
  - Ill-defined disorder [Unknown]

NARRATIVE: CASE EVENT DATE: 2018
